FAERS Safety Report 23259944 (Version 1)
Quarter: 2023Q4

REPORT INFORMATION
  Report Type: Spontaneous
  Country: US (occurrence: US)
  Receive Date: 20231204
  Receipt Date: 20231204
  Transmission Date: 20240109
  Serious: No
  Sender: FDA-Public Use
  Company Number: US-BAUSCH-BL-2023-017695

PATIENT
  Sex: Female

DRUGS (2)
  1. NIFEDIPINE [Suspect]
     Active Substance: NIFEDIPINE
     Indication: Product used for unknown indication
     Dosage: EXTENDED-RELEASE TABLET
     Route: 048
  2. NIFEDIPINE [Suspect]
     Active Substance: NIFEDIPINE
     Indication: Product used for unknown indication
     Dosage: TOOK 45 MG DAILY, EXTENDED-RELEASE TABLET
     Route: 048

REACTIONS (3)
  - Feeling abnormal [Recovering/Resolving]
  - Wrong technique in product usage process [Unknown]
  - Intentional product misuse [Unknown]
